APPROVED DRUG PRODUCT: OTICAIR
Active Ingredient: HYDROCORTISONE; NEOMYCIN SULFATE; POLYMYXIN B SULFATE
Strength: 1%;EQ 3.5MG BASE/ML;10,000 UNITS/ML
Dosage Form/Route: SUSPENSION/DROPS;OTIC
Application: A062399 | Product #001
Applicant: PHARMAFAIR INC
Approved: Nov 18, 1982 | RLD: No | RS: No | Type: DISCN